FAERS Safety Report 9344591 (Version 1)
Quarter: 2013Q2

REPORT INFORMATION
  Report Type: Spontaneous
  Country: US (occurrence: US)
  Receive Date: 20130612
  Receipt Date: 20130612
  Transmission Date: 20140414
  Serious: No
  Sender: FDA-Public Use
  Company Number: US-009507513-1306USA005232

PATIENT
  Age: 12 Year
  Sex: Female

DRUGS (2)
  1. CLARITIN [Suspect]
     Indication: EYE PRURITUS
     Dosage: UNK, QD
     Route: 048
  2. CLARITIN [Suspect]
     Indication: SEASONAL ALLERGY

REACTIONS (1)
  - Drug effect decreased [Unknown]
